FAERS Safety Report 4408502-9 (Version None)
Quarter: 2004Q3

REPORT INFORMATION
  Report Type: 
  Country: None (occurrence: None)
  Receive Date: 20040726
  Receipt Date: 20040726
  Transmission Date: 20050211
  Serious: Yes (Death)
  Sender: FDA-Public Use
  Company Number: None

PATIENT
  Age: 71 Year
  Sex: Male

DRUGS (7)
  1. AMIODARONE HCL [Suspect]
     Indication: SUPRAVENTRICULAR TACHYCARDIA
     Dosage: 200 MG BID
  2. TIAZAC [Concomitant]
  3. FLOVENT [Concomitant]
  4. SINGULAIR [Concomitant]
  5. PROSCAR [Concomitant]
  6. CELEBREX [Concomitant]
  7. PERCELON [Concomitant]

REACTIONS (3)
  - FALL [None]
  - NEUROPATHY PERIPHERAL [None]
  - PNEUMONITIS [None]
